FAERS Safety Report 14716108 (Version 8)
Quarter: 2023Q1

REPORT INFORMATION
  Report Type: Spontaneous
  Country: US (occurrence: None)
  Receive Date: 20180404
  Receipt Date: 20230307
  Transmission Date: 20230417
  Serious: Yes (Other)
  Sender: FDA-Public Use
  Company Number: 2018SE40446

PATIENT
  Age: 20965 Day
  Sex: Male
  Weight: 70.3 kg

DRUGS (55)
  1. NEXIUM [Suspect]
     Active Substance: ESOMEPRAZOLE MAGNESIUM
     Indication: Gastrooesophageal reflux disease
     Route: 048
     Dates: start: 200001, end: 201710
  2. NEXIUM [Suspect]
     Active Substance: ESOMEPRAZOLE MAGNESIUM
     Indication: Gastrooesophageal reflux disease
     Route: 048
     Dates: start: 200001, end: 201812
  3. NEXIUM [Suspect]
     Active Substance: ESOMEPRAZOLE MAGNESIUM
     Indication: Gastrooesophageal reflux disease
     Route: 048
     Dates: start: 20111125, end: 20130413
  4. NEXIUM [Suspect]
     Active Substance: ESOMEPRAZOLE MAGNESIUM
     Indication: Gastrooesophageal reflux disease
     Route: 048
     Dates: start: 20111125, end: 20160203
  5. NEXIUM 24HR [Suspect]
     Active Substance: ESOMEPRAZOLE MAGNESIUM
     Route: 048
     Dates: start: 200001, end: 201710
  6. PRILOSEC [Suspect]
     Active Substance: OMEPRAZOLE MAGNESIUM
     Indication: Gastrooesophageal reflux disease
     Route: 048
     Dates: start: 200001, end: 201710
  7. PRILOSEC [Suspect]
     Active Substance: OMEPRAZOLE MAGNESIUM
     Indication: Gastrooesophageal reflux disease
     Route: 048
     Dates: start: 200001, end: 201812
  8. PRILOSEC [Suspect]
     Active Substance: OMEPRAZOLE MAGNESIUM
     Indication: Gastrooesophageal reflux disease
     Route: 048
     Dates: start: 20000101, end: 20181231
  9. PRILOSEC [Suspect]
     Active Substance: OMEPRAZOLE MAGNESIUM
     Indication: Gastrooesophageal reflux disease
     Dosage: GENERIC
     Route: 065
     Dates: start: 20080507, end: 20111214
  10. PRILOSEC [Suspect]
     Active Substance: OMEPRAZOLE MAGNESIUM
     Indication: Gastrooesophageal reflux disease
     Route: 048
     Dates: start: 2006, end: 2018
  11. PRILOSEC OTC [Suspect]
     Active Substance: OMEPRAZOLE MAGNESIUM
     Indication: Gastrooesophageal reflux disease
     Route: 048
     Dates: start: 200001, end: 201710
  12. PRILOSEC OTC [Suspect]
     Active Substance: OMEPRAZOLE MAGNESIUM
     Indication: Gastrooesophageal reflux disease
     Route: 048
     Dates: start: 2008, end: 2011
  13. DEXILANT [Suspect]
     Active Substance: DEXLANSOPRAZOLE
     Route: 065
     Dates: start: 200001, end: 201710
  14. PREVACID 24 HR [Suspect]
     Active Substance: LANSOPRAZOLE
     Route: 065
     Dates: start: 200001, end: 201710
  15. PROTONIX [Suspect]
     Active Substance: PANTOPRAZOLE SODIUM
     Indication: Gastrooesophageal reflux disease
     Route: 065
     Dates: start: 200001, end: 201710
  16. PROTONIX [Suspect]
     Active Substance: PANTOPRAZOLE SODIUM
     Indication: Gastrooesophageal reflux disease
     Route: 065
     Dates: start: 200001, end: 201812
  17. PROTONIX [Suspect]
     Active Substance: PANTOPRAZOLE SODIUM
     Indication: Gastrooesophageal reflux disease
     Route: 065
     Dates: start: 20000301, end: 20181231
  18. PROTONIX [Suspect]
     Active Substance: PANTOPRAZOLE SODIUM
     Indication: Gastrooesophageal reflux disease
     Dosage: GENERIC
     Route: 065
     Dates: start: 20080507, end: 20180321
  19. PROTONIX [Suspect]
     Active Substance: PANTOPRAZOLE SODIUM
     Indication: Gastrooesophageal reflux disease
     Route: 065
     Dates: start: 20080507
  20. PREVACID [Suspect]
     Active Substance: LANSOPRAZOLE
     Route: 065
     Dates: start: 200001, end: 201710
  21. PREVACID [Suspect]
     Active Substance: LANSOPRAZOLE
     Route: 065
     Dates: start: 200001, end: 201812
  22. PREVACID [Suspect]
     Active Substance: LANSOPRAZOLE
     Route: 065
     Dates: start: 20000101, end: 20181231
  23. OMEPRAZOLE SODIUM [Suspect]
     Active Substance: OMEPRAZOLE SODIUM
     Dosage: GENERIC
     Route: 065
  24. ASPIRIN [Concomitant]
     Active Substance: ASPIRIN
     Indication: Abdominal pain
  25. HYDROCHLOROTHIAZIDE [Concomitant]
     Active Substance: HYDROCHLOROTHIAZIDE
  26. SUCRALFATE [Concomitant]
     Active Substance: SUCRALFATE
  27. ONDANSETRON [Concomitant]
     Active Substance: ONDANSETRON
  28. PROMETHAZINE [Concomitant]
     Active Substance: PROMETHAZINE HYDROCHLORIDE
  29. ACETAMINOPHEN [Concomitant]
     Active Substance: ACETAMINOPHEN
  30. AMLODIPINE [Concomitant]
     Active Substance: AMLODIPINE BESYLATE
  31. ALBUTEROL [Concomitant]
     Active Substance: ALBUTEROL
  32. ATORVASTATIN [Concomitant]
     Active Substance: ATORVASTATIN
  33. SIMVASTATIN [Concomitant]
     Active Substance: SIMVASTATIN
  34. LISINOPRIL [Concomitant]
     Active Substance: LISINOPRIL
  35. TRAMADOL [Concomitant]
     Active Substance: TRAMADOL
     Indication: Analgesic therapy
     Dates: start: 20080728
  36. AMOXICILLIN [Concomitant]
     Active Substance: AMOXICILLIN
     Dates: start: 20151109
  37. HYDRALAZINE [Concomitant]
     Active Substance: HYDRALAZINE HYDROCHLORIDE
  38. AZITHROMYCIN [Concomitant]
     Active Substance: AZITHROMYCIN
  39. FAMOTIDINE [Concomitant]
     Active Substance: FAMOTIDINE
  40. PEPCID [Concomitant]
     Active Substance: FAMOTIDINE
  41. ZANTAC [Concomitant]
     Active Substance: RANITIDINE HYDROCHLORIDE
  42. MAALOX ANTACID [Concomitant]
     Active Substance: ALUMINUM HYDROXIDE\DIMETHICONE\MAGNESIUM HYDROXIDE
  43. BENZONATATE [Concomitant]
     Active Substance: BENZONATATE
  44. CIPROFLOXACIN [Concomitant]
     Active Substance: CIPROFLOXACIN
  45. CLARITHROMYCIN [Concomitant]
     Active Substance: CLARITHROMYCIN
  46. KETOROLAC [Concomitant]
     Active Substance: KETOROLAC TROMETHAMINE
  47. MIRTAZAPINE [Concomitant]
     Active Substance: MIRTAZAPINE
  48. AMITRIPTYLINE [Concomitant]
     Active Substance: AMITRIPTYLINE
  49. CEPHALEXIN [Concomitant]
     Active Substance: CEPHALEXIN
  50. ESCITALOPRAM [Concomitant]
     Active Substance: ESCITALOPRAM OXALATE
  51. METOCLOPRAMIDE [Concomitant]
     Active Substance: METOCLOPRAMIDE
  52. POLYETHYLENE GLYCOL [Concomitant]
     Active Substance: POLYETHYLENE GLYCOL
  53. DICYLOMINE [Concomitant]
  54. RESPERIDOL [Concomitant]
  55. ALENDRONATE [Concomitant]
     Active Substance: ALENDRONATE SODIUM

REACTIONS (7)
  - Chronic kidney disease [Not Recovered/Not Resolved]
  - End stage renal disease [Not Recovered/Not Resolved]
  - Acute kidney injury [Unknown]
  - Hyperparathyroidism secondary [Unknown]
  - Renal injury [Unknown]
  - Renal failure [Unknown]
  - Gastrooesophageal reflux disease [Not Recovered/Not Resolved]

NARRATIVE: CASE EVENT DATE: 20111125
